FAERS Safety Report 8367389-2 (Version None)
Quarter: 2012Q2

REPORT INFORMATION
  Report Type: 
  Country: None (occurrence: None)
  Receive Date: 20120517
  Receipt Date: 20120510
  Transmission Date: 20120825
  Serious: Yes (Death, Hospitalization)
  Sender: FDA-Public Use
  Company Number: GB-UCBSA-057144

PATIENT
  Age: 38 Year
  Sex: Female

DRUGS (6)
  1. LASOPRAZOLE [Concomitant]
  2. PREDNISOLONE [Concomitant]
  3. FOLIC ACID [Concomitant]
  4. ACETAMINOPHEN AND CODEINE PHOSPHATE [Concomitant]
  5. METHOTREXATE [Concomitant]
  6. CIMZIA [Suspect]
     Indication: RHEUMATOID ARTHRITIS
     Dosage: DOSE: 200 MG
     Route: 058
     Dates: start: 20111101

REACTIONS (5)
  - OROPHARYNGEAL PAIN [None]
  - SYNCOPE [None]
  - DEATH [None]
  - WHITE BLOOD CELL COUNT INCREASED [None]
  - MALAISE [None]
